FAERS Safety Report 9310637 (Version 2)
Quarter: 2013Q2

REPORT INFORMATION
  Report Type: Spontaneous
  Country: JP (occurrence: JP)
  Receive Date: 20130527
  Receipt Date: 20130529
  Transmission Date: 20140414
  Serious: Yes (Other)
  Sender: FDA-Public Use
  Company Number: JP-UCBSA-086838

PATIENT
  Age: 82 Year
  Sex: Male

DRUGS (3)
  1. ROTIGOTINE [Suspect]
     Indication: PARKINSON^S DISEASE
     Route: 061
  2. ROTIGOTINE [Suspect]
     Indication: PARKINSON^S DISEASE
     Dosage: DAILY DOSE-8 MG/ 24 HR
     Route: 061
  3. ROTIGOTINE [Suspect]
     Indication: PARKINSON^S DISEASE
     Dosage: DOSE REDUCED
     Route: 061

REACTIONS (1)
  - Pancytopenia [Recovered/Resolved]
